FAERS Safety Report 21793712 (Version 1)
Quarter: 2022Q4

REPORT INFORMATION
  Report Type: Spontaneous
  Country: US (occurrence: US)
  Receive Date: 20221229
  Receipt Date: 20221229
  Transmission Date: 20230112
  Serious: Yes (Other)
  Sender: FDA-Public Use
  Company Number: US-ROCHE-3244095

PATIENT
  Age: 56 Year
  Sex: Female
  Weight: 44.037 kg

DRUGS (18)
  1. CLONAZEPAM [Suspect]
     Active Substance: CLONAZEPAM
     Indication: Multiple sclerosis
     Dosage: 1 TABLET,THRICE A DAY
     Route: 048
  2. OCREVUS [Suspect]
     Active Substance: OCRELIZUMAB
     Indication: Relapsing-remitting multiple sclerosis
     Dosage: 300 MG ON DAY 1 AND DAY 15, EVERY 6 MONTHS
     Route: 042
  3. METHYLPREDNISOLONE [Concomitant]
     Active Substance: METHYLPREDNISOLONE
  4. ACETAMINOPHEN [Concomitant]
     Active Substance: ACETAMINOPHEN
  5. DIPHENHYDRAMINE [Concomitant]
     Active Substance: DIPHENHYDRAMINE
  6. SOLU-MEDROL [Concomitant]
     Active Substance: METHYLPREDNISOLONE SODIUM SUCCINATE
  7. ADDERALL [Concomitant]
     Active Substance: AMPHETAMINE ASPARTATE\AMPHETAMINE SULFATE\DEXTROAMPHETAMINE SACCHARATE\DEXTROAMPHETAMINE SULFATE
  8. OMEPRAZOLE [Concomitant]
     Active Substance: OMEPRAZOLE
  9. ESTRADIOL [Concomitant]
     Active Substance: ESTRADIOL
  10. LAMICTAL [Concomitant]
     Active Substance: LAMOTRIGINE
  11. FLUOXETINE [Concomitant]
     Active Substance: FLUOXETINE HYDROCHLORIDE
  12. LAMICTAL [Concomitant]
     Active Substance: LAMOTRIGINE
  13. VIIBRYD [Concomitant]
     Active Substance: VILAZODONE HYDROCHLORIDE
  14. REMERON [Concomitant]
     Active Substance: MIRTAZAPINE
  15. COPAXONE [Concomitant]
     Active Substance: GLATIRAMER ACETATE
  16. AVONEX [Concomitant]
     Active Substance: INTERFERON BETA-1A
  17. TECFIDERA [Concomitant]
     Active Substance: DIMETHYL FUMARATE
  18. REBIF [Concomitant]
     Active Substance: INTERFERON BETA-1A

REACTIONS (6)
  - JC polyomavirus test positive [Unknown]
  - Balance disorder [Unknown]
  - Hypertonia [Unknown]
  - Tandem gait test abnormal [Unknown]
  - Muscle spasticity [Unknown]
  - Product use in unapproved indication [Unknown]

NARRATIVE: CASE EVENT DATE: 20170401
